FAERS Safety Report 10647575 (Version 2)
Quarter: 2015Q1

REPORT INFORMATION
  Report Type: Spontaneous
  Country: JP (occurrence: JP)
  Receive Date: 20141211
  Receipt Date: 20150115
  Transmission Date: 20150720
  Serious: Yes (Other)
  Sender: FDA-Public Use
  Company Number: JP-ALLERGAN-1424995US

PATIENT
  Age: 52 Year
  Sex: Female
  Weight: 51 kg

DRUGS (2)
  1. GLASH VISTA 0.03% [Suspect]
     Active Substance: BIMATOPROST
     Dosage: 2 GTT, QOD
     Route: 061
     Dates: start: 20141203
  2. GLASH VISTA 0.03% [Suspect]
     Active Substance: BIMATOPROST
     Indication: GROWTH OF EYELASHES
     Dosage: 2 GTT, QD
     Route: 061
     Dates: start: 20141113, end: 20141202

REACTIONS (5)
  - Abnormal sensation in eye [Recovering/Resolving]
  - Therapy change [None]
  - Inappropriate schedule of drug administration [Unknown]
  - Injury corneal [Unknown]
  - Eye pain [Recovering/Resolving]

NARRATIVE: CASE EVENT DATE: 20141120
